FAERS Safety Report 6817826-7 (Version None)
Quarter: 2010Q3

REPORT INFORMATION
  Report Type: 
  Country: None (occurrence: None)
  Receive Date: 20100706
  Receipt Date: 20100701
  Transmission Date: 20110219
  Serious: No
  Sender: FDA-Public Use
  Company Number: US-MERCK-1004USA04562

PATIENT
  Age: 47 Year
  Sex: Female

DRUGS (8)
  1. EMEND [Suspect]
     Indication: PROPHYLAXIS OF NAUSEA AND VOMITING
     Route: 048
     Dates: start: 20100419
  2. EMEND [Suspect]
     Route: 048
     Dates: start: 20100420, end: 20100421
  3. COMPAZINE [Suspect]
     Route: 065
  4. ANTINEOPLASTIC (UNSPECIFIED) [Concomitant]
     Route: 065
  5. TAXOTERE [Concomitant]
     Route: 065
  6. CYTOXAN [Concomitant]
     Route: 065
  7. ALOXI [Concomitant]
     Route: 065
  8. TAGAMET [Concomitant]
     Route: 065

REACTIONS (5)
  - ANAEMIA [None]
  - DRUG INTERACTION [None]
  - FATIGUE [None]
  - MUSCLE TWITCHING [None]
  - NAUSEA [None]
